FAERS Safety Report 4336377-5 (Version None)
Quarter: 2004Q2

REPORT INFORMATION
  Report Type: 
  Country: None (occurrence: None)
  Receive Date: 20040412
  Receipt Date: 20040223
  Transmission Date: 20050107
  Serious: Yes (Other)
  Sender: FDA-Public Use
  Company Number: PHBS2004IE02579

PATIENT
  Age: 57 Year
  Sex: Female

DRUGS (3)
  1. AREDIA [Suspect]
     Indication: HYPERCALCAEMIA OF MALIGNANCY
     Dosage: 90 MG
     Route: 042
     Dates: start: 20020329, end: 20031212
  2. SULFASALAZINE [Concomitant]
  3. ANASTROZOLE [Concomitant]

REACTIONS (3)
  - DIALYSIS [None]
  - GLOMERULONEPHRITIS [None]
  - GLOMERULONEPHRITIS FOCAL [None]
